FAERS Safety Report 8578440 (Version 3)
Quarter: 2012Q4

REPORT INFORMATION
  Report Type: Spontaneous
  Country: US (occurrence: None)
  Receive Date: 20120517
  Receipt Date: 20120829
  Transmission Date: 20130627
  Serious: Yes (Hospitalization)
  Sender: FDA-Public Use
  Company Number: 2012SGN00196

PATIENT
  Age: 28 Year
  Sex: Female

DRUGS (4)
  1. BRENTUXIMAB VEDOTIN [Suspect]
     Indication: HODGKIN^S DISEASE REFRACTORY
     Dosage: 103 MG, QCYCLE, INTRAVENOUS
     Route: 042
     Dates: start: 20120228, end: 20120410
  2. IFOSFAMIDE [Suspect]
     Indication: HODGKIN^S DISEASE REFRACTORY
     Dosage: 10000 MG, QCYCLE
     Dates: start: 20120418, end: 20120511
  3. CARBOPLATIN [Suspect]
     Indication: HODGKIN^S DISEASE REFRACTORY
     Dosage: 750 MG, QCYCLE
     Dates: start: 20120418, end: 20120511
  4. ETOPOSIDE [Suspect]
     Indication: HODGKIN^S DISEASE REFRACTORY
     Dosage: 400 MG, CYCLE
     Dates: start: 20120418, end: 20120511

REACTIONS (6)
  - Nausea [None]
  - Febrile neutropenia [None]
  - Bone pain [None]
  - Vomiting [None]
  - Diarrhoea [None]
  - Chills [None]
